FAERS Safety Report 18461066 (Version 1)
Quarter: 2020Q4

REPORT INFORMATION
  Report Type: Report from Study
  Country: US (occurrence: US)
  Receive Date: 20201104
  Receipt Date: 20201104
  Transmission Date: 20210114
  Serious: No
  Sender: FDA-Public Use
  Company Number: US-IPSEN BIOPHARMACEUTICALS, INC.-2020-08848

PATIENT
  Age: 3 Year
  Sex: Male
  Weight: 12 kg

DRUGS (2)
  1. DYSPORT [Suspect]
     Active Substance: ABOBOTULINUMTOXINA
     Indication: OFF LABEL USE
  2. DYSPORT [Suspect]
     Active Substance: ABOBOTULINUMTOXINA
     Indication: MUSCLE SPASTICITY
     Dosage: 280 IU- L AND R MEDIAL HAMSTRINGS (100 UNITS EACH), LATERAL HAMSTRINGS (40 UNITS EACH)
     Route: 030
     Dates: start: 20180320, end: 20180320

REACTIONS (2)
  - Ear infection [Recovered/Resolved]
  - Off label use [Unknown]

NARRATIVE: CASE EVENT DATE: 20180320
